FAERS Safety Report 7757742-X (Version None)
Quarter: 2011Q3

REPORT INFORMATION
  Report Type: 
  Country: None (occurrence: None)
  Receive Date: 20110916
  Receipt Date: 20110104
  Transmission Date: 20111222
  Serious: No
  Sender: FDA-Public Use
  Company Number: US-ALLERGAN-1100039US

PATIENT
  Age: 62 Year
  Sex: Female

DRUGS (1)
  1. ACUVAIL [Suspect]
     Indication: POSTOPERATIVE CARE
     Dosage: UNK
     Dates: end: 20100922

REACTIONS (7)
  - LACRIMATION INCREASED [None]
  - OCULAR HYPERAEMIA [None]
  - PHOTOPHOBIA [None]
  - VISION BLURRED [None]
  - EYE PAIN [None]
  - FOREIGN BODY SENSATION IN EYES [None]
  - HYPERSENSITIVITY [None]
